FAERS Safety Report 13827271 (Version 1)
Quarter: 2017Q3

REPORT INFORMATION
  Report Type: Spontaneous
  Country: US (occurrence: US)
  Receive Date: 20170802
  Receipt Date: 20170802
  Transmission Date: 20171127
  Serious: Yes (Other)
  Sender: FDA-Public Use
  Company Number: US-ROCHE-664759

PATIENT
  Age: 86 Year
  Sex: Female
  Weight: 68.2 kg

DRUGS (6)
  1. VITAMIN C [Concomitant]
     Active Substance: ASCORBIC ACID
     Route: 065
  2. VITAMIN D [Concomitant]
     Active Substance: CHOLECALCIFEROL
     Route: 065
  3. FISH OIL [Concomitant]
     Active Substance: FISH OIL
     Route: 065
  4. CENTRUM SILVER [Concomitant]
     Active Substance: MINERALS\VITAMINS
     Route: 065
  5. CALCIUM [Concomitant]
     Active Substance: CALCIUM
     Route: 065
  6. BONIVA [Suspect]
     Active Substance: IBANDRONATE SODIUM
     Indication: OSTEOPOROSIS
     Route: 048

REACTIONS (3)
  - Pelvic fracture [Unknown]
  - Back pain [Unknown]
  - Spinal fracture [Unknown]

NARRATIVE: CASE EVENT DATE: 200903
